FAERS Safety Report 24139116 (Version 1)
Quarter: 2024Q3

REPORT INFORMATION
  Report Type: Report from Study
  Country: US (occurrence: US)
  Receive Date: 20240726
  Receipt Date: 20240726
  Transmission Date: 20241017
  Serious: No
  Sender: ACADIA PHARMACEUTICALS
  Company Number: US-ACADIA PHARMACEUTICALS INC.-ACA-2024-PIM-003161

PATIENT
  Sex: Male

DRUGS (16)
  1. NUPLAZID [Suspect]
     Active Substance: PIMAVANSERIN TARTRATE
     Indication: Psychotic disorder
     Dosage: 34 MILLIGRAM, QD
     Route: 048
     Dates: start: 20240417, end: 20240703
  2. NUPLAZID [Suspect]
     Active Substance: PIMAVANSERIN TARTRATE
     Indication: Delusion
  3. NUPLAZID [Suspect]
     Active Substance: PIMAVANSERIN TARTRATE
     Indication: Parkinson^s disease psychosis
  4. CELEBREX [Concomitant]
     Active Substance: CELECOXIB
  5. NASONEX [Concomitant]
     Active Substance: MOMETASONE FUROATE
  6. CYANOCOBALAMIN [Concomitant]
     Active Substance: CYANOCOBALAMIN
  7. SYMBICORT [Concomitant]
     Active Substance: BUDESONIDE\FORMOTEROL FUMARATE DIHYDRATE
  8. CRESTOR [Concomitant]
     Active Substance: ROSUVASTATIN CALCIUM
  9. TYLENOL [Concomitant]
     Active Substance: ACETAMINOPHEN
  10. CLARITIN [Concomitant]
     Active Substance: LORATADINE
  11. LACTOBACILLUS ACIDOPHILUS [Concomitant]
     Active Substance: LACTOBACILLUS ACIDOPHILUS
  12. MELATONIN [Concomitant]
     Active Substance: MELATONIN
  13. CARBIDOPA\LEVODOPA [Concomitant]
     Active Substance: CARBIDOPA\LEVODOPA
  14. VITAMIN D2 [Concomitant]
     Active Substance: ERGOCALCIFEROL
  15. GABAPENTIN [Concomitant]
     Active Substance: GABAPENTIN
  16. SERTRALINE [Concomitant]
     Active Substance: SERTRALINE HYDROCHLORIDE

REACTIONS (1)
  - Drug ineffective [Recovered/Resolved]
